FAERS Safety Report 15522901 (Version 1)
Quarter: 2018Q4

REPORT INFORMATION
  Report Type: Spontaneous
  Country: US (occurrence: US)
  Receive Date: 20181014
  Receipt Date: 20181014
  Transmission Date: 20190205
  Serious: Yes (Disabling)
  Sender: FDA-Public Use
  Company Number: None

PATIENT
  Age: 78 Year
  Sex: Female
  Weight: 101.25 kg

DRUGS (12)
  1. CALCIUM SUPPLEMENT [Concomitant]
     Active Substance: CALCIUM
  2. MULTI=-VITAMIN [Concomitant]
  3. FOLIC ACID. [Concomitant]
     Active Substance: FOLIC ACID
  4. COENZYME Q10 [Concomitant]
     Active Substance: UBIDECARENONE
  5. CBD CREAM [Concomitant]
  6. PROLIA [Suspect]
     Active Substance: DENOSUMAB
     Dosage: ?          QUANTITY:1 DF DOSAGE FORM;OTHER FREQUENCY:EVERY 6 MONTHS;?
     Route: 058
  7. FORTEO [Suspect]
     Active Substance: TERIPARATIDE
  8. VITAMIN B COMPLEX [Concomitant]
     Active Substance: CYANOCOBALAMIN\DEXPANTHENOL\NIACINAMIDE\PYRIDOXINE HYDROCHLORIDE\RIBOFLAVIN 5^-PHOSPHATE SODIUM\THIAMINE HYDROCHLORIDE\VITAMIN B COMPLEX
  9. GENERIC LOPRESSOR [Concomitant]
  10. ADVIL [Concomitant]
     Active Substance: IBUPROFEN
  11. TYLENOL [Concomitant]
     Active Substance: ACETAMINOPHEN
  12. CBD OIL [Concomitant]
     Active Substance: CANNABIDIOL\HERBALS

REACTIONS (22)
  - Pain in extremity [None]
  - Candida infection [None]
  - Scoliosis [None]
  - Ear congestion [None]
  - Acne [None]
  - Tinnitus [None]
  - Muscle spasms [None]
  - Neuropathy peripheral [None]
  - Condition aggravated [None]
  - Myalgia [None]
  - Sinus congestion [None]
  - Ear pain [None]
  - Rash macular [None]
  - Back pain [None]
  - Gastrooesophageal reflux disease [None]
  - Product complaint [None]
  - Fatigue [None]
  - Alopecia [None]
  - Rash [None]
  - Muscular weakness [None]
  - Arthralgia [None]
  - Weight increased [None]

NARRATIVE: CASE EVENT DATE: 20180418
